FAERS Safety Report 12626974 (Version 1)
Quarter: 2016Q3

REPORT INFORMATION
  Report Type: Spontaneous
  Country: IT (occurrence: IT)
  Receive Date: 20160805
  Receipt Date: 20160805
  Transmission Date: 20161109
  Serious: Yes (Life-Threatening)
  Sender: FDA-Public Use
  Company Number: IT-PFIZER INC-2016367816

PATIENT
  Age: 58 Year
  Sex: Male

DRUGS (1)
  1. EPSODILAVE [Suspect]
     Active Substance: HEPARIN SODIUM
     Dosage: UNK
     Route: 040
     Dates: start: 20160722, end: 20160722

REACTIONS (4)
  - Hyperhidrosis [Recovered/Resolved]
  - Bradycardia [Recovered/Resolved]
  - Hypotension [Recovered/Resolved]
  - Pallor [Recovered/Resolved]

NARRATIVE: CASE EVENT DATE: 20160722
